FAERS Safety Report 11273718 (Version 1)
Quarter: 2015Q3

REPORT INFORMATION
  Report Type: Spontaneous
  Country: IT (occurrence: IT)
  Receive Date: 20150715
  Receipt Date: 20150715
  Transmission Date: 20151125
  Serious: Yes (Life-Threatening)
  Sender: FDA-Public Use
  Company Number: IT-BAYER-2015-372076

PATIENT
  Sex: Male
  Weight: 70 kg

DRUGS (7)
  1. FUROSEMIDE. [Interacting]
     Active Substance: FUROSEMIDE
     Dosage: DAILY DOSE 100 MG
     Route: 048
  2. ALDACTONE [Interacting]
     Active Substance: SPIRONOLACTONE
     Dosage: DAILY DOSE 25 MG
     Route: 048
  3. EUTIROX [Concomitant]
     Active Substance: LEVOTHYROXINE SODIUM
  4. OKI [Interacting]
     Active Substance: KETOPROFEN LYSINE
     Indication: NECK PAIN
     Dosage: DAILY DOSE 80 MG
     Route: 048
     Dates: start: 20150624, end: 20150626
  5. CARDIOASPIRIN [Suspect]
     Active Substance: ASPIRIN
     Dosage: DAILY DOSE 100 MG
     Route: 048
  6. LIMPIDEX [Interacting]
     Active Substance: LANSOPRAZOLE
     Dosage: DAILY DOSE 30 MG
     Route: 048
  7. RIVOTRIL [Concomitant]
     Active Substance: CLONAZEPAM

REACTIONS (3)
  - Drug interaction [Recovering/Resolving]
  - Hepatitis acute [Recovering/Resolving]
  - Acute kidney injury [Recovering/Resolving]

NARRATIVE: CASE EVENT DATE: 20150627
